FAERS Safety Report 9755927 (Version 1)
Quarter: 2013Q4

REPORT INFORMATION
  Report Type: Spontaneous
  Country: US (occurrence: US)
  Receive Date: 20131213
  Receipt Date: 20131213
  Transmission Date: 20140711
  Serious: No
  Sender: FDA-Public Use
  Company Number: US-GLAXOSMITHKLINE-A1026617A

PATIENT
  Age: 67 Year
  Sex: Female

DRUGS (3)
  1. EQUATE NTS 21MG, CLEAR [Suspect]
     Indication: EX-TOBACCO USER
  2. WALGREENS NICOTINE TRANSDERMAL SYSTEM PATCH CLEAR, 14MG [Suspect]
     Indication: EX-TOBACCO USER
  3. NICODERM CQ CLEAR 14MG [Suspect]
     Indication: EX-TOBACCO USER
     Dates: start: 20130611, end: 20130611

REACTIONS (10)
  - Application site pruritus [Recovered/Resolved]
  - Application site swelling [Recovered/Resolved]
  - Application site erythema [Recovered/Resolved]
  - Application site reaction [Recovered/Resolved]
  - Application site pain [Recovered/Resolved]
  - Nausea [Recovered/Resolved]
  - Hypersensitivity [Recovered/Resolved]
  - Headache [Not Recovered/Not Resolved]
  - Dizziness [Not Recovered/Not Resolved]
  - Drug administration error [Unknown]
